FAERS Safety Report 4660034-9 (Version None)
Quarter: 2005Q2

REPORT INFORMATION
  Report Type: 
  Country: None (occurrence: None)
  Receive Date: 20050512
  Receipt Date: 20050504
  Transmission Date: 20051028
  Serious: Yes (Hospitalization)
  Sender: FDA-Public Use
  Company Number: US-BOEHRINGER INGELHEIM PHARMACEUTICALS, INC.-2005-BP-07482BP

PATIENT
  Age: 57 Year
  Sex: Female

DRUGS (14)
  1. COMBIVENT [Suspect]
  2. AVELOX [Suspect]
     Indication: BRONCHITIS
  3. NASONEX [Concomitant]
  4. ESTRACE [Concomitant]
  5. LIPITOR [Concomitant]
  6. NASACORT [Concomitant]
  7. NAPROSYN [Concomitant]
  8. TIAZAC [Concomitant]
  9. LASIX [Concomitant]
  10. TOPROL-XL [Concomitant]
  11. LISINOPRIL [Concomitant]
  12. PREDNISONE TAB [Concomitant]
  13. HUMIBID LA [Concomitant]
  14. COUMADIN [Concomitant]

REACTIONS (3)
  - ABDOMINAL HAEMATOMA [None]
  - ABDOMINAL PAIN [None]
  - BRONCHITIS [None]
